FAERS Safety Report 9095568 (Version 2)
Quarter: 2013Q1

REPORT INFORMATION
  Report Type: Spontaneous
  Country: DK (occurrence: None)
  Receive Date: 20130123
  Receipt Date: 20130128
  Transmission Date: 20140127
  Serious: No
  Sender: FDA-Public Use
  Company Number: 2013MA000510

PATIENT
  Age: 18 Month
  Sex: Female

DRUGS (1)
  1. PROPANOLOL HCL EXTENDED-RELEASE CAPSULES USP, 80MG (AELLC) (PROPRANOLOL) [Suspect]

REACTIONS (2)
  - Medication error [None]
  - No adverse event [None]
